FAERS Safety Report 13749348 (Version 1)
Quarter: 2017Q3

REPORT INFORMATION
  Report Type: Report from Study
  Country: None (occurrence: RO)
  Receive Date: 20170713
  Receipt Date: 20170713
  Transmission Date: 20171127
  Serious: Yes (Hospitalization)
  Sender: FDA-Public Use
  Company Number: RO-ABBVIE-17K-135-2034961-00

PATIENT
  Age: 77 Year
  Sex: Female
  Weight: 93 kg

DRUGS (1)
  1. HUMIRA [Suspect]
     Active Substance: ADALIMUMAB
     Indication: RHEUMATOID ARTHRITIS
     Route: 058
     Dates: start: 20140410

REACTIONS (8)
  - Chronic gastritis [Recovering/Resolving]
  - Ischaemic cardiomyopathy [Recovering/Resolving]
  - Irritable bowel syndrome [Recovering/Resolving]
  - Hypertensive cardiomyopathy [Recovering/Resolving]
  - Ventricular arrhythmia [Recovering/Resolving]
  - Left ventricular failure [Recovering/Resolving]
  - Dyspepsia [Recovering/Resolving]
  - Gastrooesophageal reflux disease [Recovering/Resolving]

NARRATIVE: CASE EVENT DATE: 20170302
